FAERS Safety Report 11623621 (Version 1)
Quarter: 2015Q4

REPORT INFORMATION
  Report Type: Spontaneous
  Country: US (occurrence: US)
  Receive Date: 20151013
  Receipt Date: 20151013
  Transmission Date: 20160304
  Serious: No
  Sender: FDA-Public Use
  Company Number: US-JNJFOC-20150306105

PATIENT
  Sex: Male
  Weight: 72.12 kg

DRUGS (13)
  1. ASPIRIN. [Concomitant]
     Active Substance: ASPIRIN
     Route: 065
     Dates: start: 20140522
  2. LISINOPRIL. [Concomitant]
     Active Substance: LISINOPRIL
     Route: 065
     Dates: start: 20140909
  3. VITAMIN D3 [Concomitant]
     Active Substance: CHOLECALCIFEROL
     Route: 065
     Dates: start: 20140909
  4. SOLU-MEDROL [Concomitant]
     Active Substance: METHYLPREDNISOLONE SODIUM SUCCINATE
     Indication: PREMEDICATION
     Route: 042
  5. FENOFIBRATE. [Concomitant]
     Active Substance: FENOFIBRATE
     Route: 065
     Dates: start: 20140909
  6. MEDROL [Concomitant]
     Active Substance: METHYLPREDNISOLONE
     Route: 065
  7. TYLENOL [Suspect]
     Active Substance: ACETAMINOPHEN
     Indication: PRURITUS
     Route: 048
  8. BENADRYL [Suspect]
     Active Substance: DIPHENHYDRAMINE HYDROCHLORIDE
     Indication: PREMEDICATION
     Route: 048
  9. TYLENOL [Suspect]
     Active Substance: ACETAMINOPHEN
     Indication: PREMEDICATION
     Route: 048
  10. BENADRYL [Suspect]
     Active Substance: DIPHENHYDRAMINE HYDROCHLORIDE
     Indication: PRURITUS
     Route: 048
  11. SULFASALAZINE. [Concomitant]
     Active Substance: SULFASALAZINE
     Route: 048
     Dates: start: 20140522
  12. REMICADE [Concomitant]
     Active Substance: INFLIXIMAB
     Indication: RHEUMATOID ARTHRITIS
     Route: 042
     Dates: start: 20140416
  13. SOLU-MEDROL [Concomitant]
     Active Substance: METHYLPREDNISOLONE SODIUM SUCCINATE
     Indication: URTICARIA
     Route: 042

REACTIONS (2)
  - Product use issue [Unknown]
  - Therapeutic response unexpected [Unknown]
